FAERS Safety Report 25228704 (Version 2)
Quarter: 2025Q2

REPORT INFORMATION
  Report Type: Spontaneous
  Country: US (occurrence: US)
  Receive Date: 20250423
  Receipt Date: 20250425
  Transmission Date: 20250717
  Serious: No
  Sender: BAXTER
  Company Number: US-BAXTER-2025BAX014283

PATIENT
  Age: 52 Year
  Sex: Female

DRUGS (2)
  1. CLINIMIX [Suspect]
     Active Substance: ALANINE\ARGININE\CALCIUM CHLORIDE\DEXTROSE\DEXTROSE MONOHYDRATE\GLYCINE\HISTIDINE\ISOLEUCINE\LEUCINE
     Indication: Failure to thrive
     Dosage: 30 ML, 1X AN HOUR (ROUTE: IVPICC)
     Route: 042
     Dates: start: 202504, end: 20250416
  2. VITAMINS [Suspect]
     Active Substance: VITAMINS
     Indication: Failure to thrive
     Route: 042
     Dates: start: 202504, end: 20250416

REACTIONS (3)
  - Chills [Not Recovered/Not Resolved]
  - Nausea [Not Recovered/Not Resolved]
  - Pyrexia [Not Recovered/Not Resolved]

NARRATIVE: CASE EVENT DATE: 20250413
